FAERS Safety Report 4753629-5 (Version None)
Quarter: 2005Q3

REPORT INFORMATION
  Report Type: 
  Country: None (occurrence: None)
  Receive Date: 20050826
  Receipt Date: 20050818
  Transmission Date: 20060218
  Serious: Yes (Hospitalization)
  Sender: FDA-Public Use
  Company Number: US-JNJFOC-20050805034

PATIENT
  Sex: Female
  Weight: 48.99 kg

DRUGS (1)
  1. DURAGESIC-100 [Suspect]
     Route: 062
     Dates: start: 20020101, end: 20050816

REACTIONS (4)
  - ASTHENIA [None]
  - DIZZINESS [None]
  - EATING DISORDER [None]
  - MALABSORPTION [None]
